FAERS Safety Report 10041714 (Version 2)
Quarter: 2014Q2

REPORT INFORMATION
  Report Type: Spontaneous
  Country: US (occurrence: None)
  Receive Date: 20140325
  Receipt Date: 20140401
  Transmission Date: 20141212
  Serious: Yes (Other)
  Sender: FDA-Public Use
  Company Number: 2014-US-003200

PATIENT
  Age: 24 Year
  Sex: Female
  Weight: 81.6 kg

DRUGS (7)
  1. XYREM [Suspect]
     Indication: NARCOLEPSY
     Dates: start: 20140308, end: 20140311
  2. NUVIGIL (ARMODAFINIL) [Suspect]
     Indication: NARCOLEPSY
     Dates: end: 20140311
  3. PROZAC (FLUOXETINE HYDROCHLORIDE) [Concomitant]
  4. PRAZOSIN (PRAZOSIN HYDRCHLORIDE) [Concomitant]
  5. CLARITIN (LORATIDINE) [Concomitant]
  6. LORYNA (DROSPIRENONE, ETHINYLESTRADIOL) [Concomitant]
  7. ATIVAN (LORAZEPAM) [Suspect]

REACTIONS (8)
  - Fall [None]
  - Head injury [None]
  - Headache [None]
  - Convulsion [None]
  - Insomnia [None]
  - Stress [None]
  - Epilepsy [None]
  - Generalised tonic-clonic seizure [None]
